FAERS Safety Report 25327181 (Version 1)
Quarter: 2025Q2

REPORT INFORMATION
  Report Type: Spontaneous
  Country: US (occurrence: US)
  Receive Date: 20250517
  Receipt Date: 20250517
  Transmission Date: 20250717
  Serious: No
  Sender: SANOFI AVENTIS
  Company Number: US-SA-2025SA141575

PATIENT
  Age: 68 Year
  Sex: Female

DRUGS (4)
  1. DUPIXENT [Suspect]
     Active Substance: DUPILUMAB
     Indication: Asthma
     Dosage: 300 MG, QOW
     Route: 058
  2. DUPIXENT [Suspect]
     Active Substance: DUPILUMAB
     Indication: Chronic obstructive pulmonary disease
  3. DUPIXENT [Suspect]
     Active Substance: DUPILUMAB
     Indication: Hypersensitivity
  4. ALBUTEROL [Concomitant]
     Active Substance: ALBUTEROL
     Dosage: UNK UNK, QID

REACTIONS (6)
  - Dyspnoea [Unknown]
  - Cough [Unknown]
  - Asthma [Recovering/Resolving]
  - Condition aggravated [Unknown]
  - Therapeutic response decreased [Unknown]
  - Product use in unapproved indication [Unknown]

NARRATIVE: CASE EVENT DATE: 20250401
